FAERS Safety Report 7571043-4 (Version None)
Quarter: 2011Q2

REPORT INFORMATION
  Report Type: 
  Country: None (occurrence: None)
  Receive Date: 20110620
  Receipt Date: 20110607
  Transmission Date: 20111010
  Serious: Yes (Hospitalization, Other)
  Sender: FDA-Public Use
  Company Number: 1000020593

PATIENT
  Age: 76 Year
  Sex: Female
  Weight: 40 kg

DRUGS (1)
  1. ROFLUMILAST (ROFLUMILAST) [Suspect]
     Indication: CHRONIC OBSTRUCTIVE PULMONARY DISEASE
     Dosage: 500 MCG, ORAL
     Route: 048
     Dates: start: 20110415, end: 20110418

REACTIONS (3)
  - GENERAL PHYSICAL HEALTH DETERIORATION [None]
  - DECREASED APPETITE [None]
  - DIARRHOEA [None]
